FAERS Safety Report 7801906-3 (Version None)
Quarter: 2011Q4

REPORT INFORMATION
  Report Type: 
  Country: None (occurrence: None)
  Receive Date: 20111007
  Receipt Date: 20111003
  Transmission Date: 20120403
  Serious: Yes (Hospitalization, Other)
  Sender: FDA-Public Use
  Company Number: JP-PFIZER INC-2011199742

PATIENT
  Age: 50 Year
  Sex: Female
  Weight: 82.2 kg

DRUGS (7)
  1. TAXOL [Suspect]
     Indication: BREAST CANCER
     Dosage: 134 MG, WEEKLY
     Route: 041
     Dates: start: 20110509, end: 20110801
  2. DECADRON [Concomitant]
     Indication: BREAST CANCER
     Dosage: 1.65 MG, WEEKLY
     Route: 041
     Dates: start: 20110509, end: 20110801
  3. LYRICA [Suspect]
     Indication: NEUROPATHY PERIPHERAL
     Dosage: 75 MG, 2X/DAY
     Route: 048
     Dates: start: 20110516, end: 20110605
  4. CHLOR-TRIMETON [Concomitant]
     Indication: BREAST CANCER
     Dosage: 10 MG, WEEKLY
     Route: 041
     Dates: start: 20110509, end: 20110801
  5. ZANTAC [Concomitant]
     Indication: BREAST CANCER
     Dosage: 50 MG, WEEKLY
     Route: 041
     Dates: start: 20110509, end: 20110801
  6. LYRICA [Suspect]
     Dosage: 150 MG, 2X/DAY
     Route: 048
     Dates: start: 20110606, end: 20110811
  7. CIPROFLOXACIN HCL [Concomitant]
     Indication: PYREXIA
     Dosage: 200 MG, 3X/DAY
     Route: 048
     Dates: start: 20110711, end: 20110723

REACTIONS (1)
  - LUNG DISORDER [None]
